FAERS Safety Report 9502461 (Version 1)
Quarter: 2013Q3

REPORT INFORMATION
  Report Type: Spontaneous
  Country: BR (occurrence: BR)
  Receive Date: 20130906
  Receipt Date: 20130906
  Transmission Date: 20140515
  Serious: Yes (Other)
  Sender: FDA-Public Use
  Company Number: BR-BRISTOL-MYERS SQUIBB COMPANY-19278431

PATIENT
  Age: 60 Year
  Sex: Female
  Weight: 77 kg

DRUGS (6)
  1. ONGLYZA TABS 5 MG [Suspect]
     Indication: DIABETES MELLITUS
     Dosage: START DT:JAN OR FEB13
     Route: 048
     Dates: start: 2013
  2. INSULIN [Concomitant]
     Indication: DIABETES MELLITUS
  3. SYNTHROID [Concomitant]
     Indication: HYPOTHYROIDISM
  4. OLMETEC [Concomitant]
     Indication: HYPERTENSION
  5. AMLOC [Concomitant]
     Indication: HYPERTENSION
  6. CLORANA [Concomitant]
     Indication: HYPERTENSION

REACTIONS (3)
  - Cataract [Unknown]
  - Nervousness [Unknown]
  - Hyperglycaemia [Unknown]
